FAERS Safety Report 25887227 (Version 2)
Quarter: 2025Q4

REPORT INFORMATION
  Report Type: Spontaneous
  Country: JP (occurrence: JP)
  Receive Date: 20251006
  Receipt Date: 20251014
  Transmission Date: 20260117
  Serious: Yes (Death)
  Sender: PURDUE
  Company Number: JP-shionogi-202500010472

PATIENT
  Age: 76 Year
  Sex: Male
  Weight: 64 kg

DRUGS (15)
  1. OXYCONTIN [Suspect]
     Active Substance: OXYCODONE HYDROCHLORIDE
     Indication: Product used for unknown indication
     Dosage: UNK
     Route: 065
     Dates: start: 20250626, end: 20250725
  2. NALDEMEDINE [Suspect]
     Active Substance: NALDEMEDINE
     Indication: Product used for unknown indication
     Dosage: UNK
     Route: 065
     Dates: start: 20250626, end: 20250727
  3. PREDONINE [Suspect]
     Active Substance: PREDNISOLONE
     Indication: Liver disorder
     Dosage: 60 MILLIGRAM, DAILY
     Route: 041
     Dates: start: 20250524
  4. PREDONINE [Suspect]
     Active Substance: PREDNISOLONE
     Dosage: DOSE GRADUALLY REDUCED
     Route: 041
     Dates: start: 202505, end: 20250529
  5. PREDONINE [Suspect]
     Active Substance: PREDNISOLONE
     Dosage: ADMINISTRATION RESTARTED (80 MILLIGRAM, DAILY)
     Route: 041
     Dates: start: 20250711
  6. PREDONINE [Suspect]
     Active Substance: PREDNISOLONE
     Dosage: 40 MILLIGRAM, DAILY
     Route: 041
     Dates: start: 20250716
  7. PADCEV [Suspect]
     Active Substance: ENFORTUMAB VEDOTIN-EJFV
     Indication: Transitional cell carcinoma
     Dosage: 86.125 MILLIGRAM, DAILY
     Route: 041
     Dates: start: 20250501, end: 20250501
  8. PADCEV [Suspect]
     Active Substance: ENFORTUMAB VEDOTIN-EJFV
     Dosage: 82.7 MILLIGRAM, DAILY
     Route: 041
     Dates: start: 20250626, end: 20250626
  9. PADCEV [Suspect]
     Active Substance: ENFORTUMAB VEDOTIN-EJFV
     Dosage: 82.7 MILLIGRAM, DAILY
     Route: 041
     Dates: start: 20250703, end: 20250703
  10. PADCEV [Suspect]
     Active Substance: ENFORTUMAB VEDOTIN-EJFV
     Dosage: 86.125 MILLIGRAM, DAILY
     Route: 041
     Dates: start: 20250508, end: 20250508
  11. KEYTRUDA [Suspect]
     Active Substance: PEMBROLIZUMAB
     Indication: Transitional cell carcinoma
     Dosage: 200 MILLIGRAM, DAILY
     Route: 041
     Dates: start: 20250501
  12. LOXOPROFEN SODIUM [Concomitant]
     Active Substance: LOXOPROFEN SODIUM
     Indication: Product used for unknown indication
     Dosage: UNK
     Route: 065
     Dates: start: 20250626, end: 20250725
  13. MAGNESIUM OXIDE [Concomitant]
     Active Substance: MAGNESIUM OXIDE
     Indication: Product used for unknown indication
     Dosage: UNK
     Route: 065
     Dates: start: 20250626, end: 20250725
  14. SILODOSIN OD [Concomitant]
     Indication: Product used for unknown indication
     Dosage: UNK
     Route: 065
     Dates: start: 20250626, end: 20250725
  15. REBAMIPIDE [Concomitant]
     Active Substance: REBAMIPIDE
     Indication: Product used for unknown indication
     Dosage: UNK
     Route: 065
     Dates: start: 20250626, end: 20250725

REACTIONS (3)
  - Interstitial lung disease [Fatal]
  - Pneumocystis jirovecii pneumonia [Fatal]
  - Acute respiratory distress syndrome [Fatal]

NARRATIVE: CASE EVENT DATE: 20250705
